FAERS Safety Report 7532229-8 (Version None)
Quarter: 2011Q2

REPORT INFORMATION
  Report Type: 
  Country: None (occurrence: None)
  Receive Date: 20110608
  Receipt Date: 20110531
  Transmission Date: 20111010
  Serious: Yes (Hospitalization)
  Sender: FDA-Public Use
  Company Number: PHHY2011US48736

PATIENT
  Age: 13 Year
  Sex: Male
  Weight: 53 kg

DRUGS (9)
  1. ANTICHOLINERGIC AGENTS [Suspect]
     Dosage: UNK
  2. DESFLURANE [Suspect]
     Dosage: UNK
  3. NADOLOL [Concomitant]
     Dosage: 30 MG, BID
  4. ONDANSETRON [Suspect]
     Dosage: UNK
  5. SEVOFLURANE [Suspect]
     Dosage: UNK
  6. MEXILETINE HYDROCHLORIDE [Concomitant]
     Dosage: 300 MG, UNK
  7. VECURONIUM BROMIDE [Suspect]
     Dosage: UNK
  8. ACTEYLCHOLINESTERASE [Suspect]
     Dosage: UNK
  9. POTASSIUM SUPPLEMENTS [Concomitant]
     Dosage: UNK

REACTIONS (2)
  - EXTRASYSTOLES [None]
  - VENTRICULAR TACHYCARDIA [None]
